FAERS Safety Report 24142828 (Version 1)
Quarter: 2024Q3

REPORT INFORMATION
  Report Type: Spontaneous
  Country: US (occurrence: None)
  Receive Date: 20240726
  Receipt Date: 20240726
  Transmission Date: 20241016
  Serious: Yes (Other)
  Sender: ASTRAZENECA
  Company Number: 2024A165589

PATIENT

DRUGS (2)
  1. TEZSPIRE [Suspect]
     Active Substance: TEZEPELUMAB-EKKO
  2. PREDNISONE [Concomitant]
     Active Substance: PREDNISONE

REACTIONS (6)
  - Infectious pleural effusion [Unknown]
  - Drug ineffective [Unknown]
  - Dyspnoea [Unknown]
  - Asthma [Unknown]
  - Insurance issue [Unknown]
  - Bronchitis [Unknown]
